FAERS Safety Report 7123482-3 (Version None)
Quarter: 2010Q4

REPORT INFORMATION
  Report Type: 
  Country: None (occurrence: None)
  Receive Date: 20101125
  Receipt Date: 20101118
  Transmission Date: 20110411
  Serious: No
  Sender: FDA-Public Use
  Company Number: US-BIOGENIDEC-2010BI040970

PATIENT
  Sex: Female

DRUGS (1)
  1. AVONEX [Suspect]
     Indication: MULTIPLE SCLEROSIS
     Route: 030
     Dates: start: 19960801

REACTIONS (6)
  - CHILLS [None]
  - COUGH [None]
  - HYPERHIDROSIS [None]
  - SINUS HEADACHE [None]
  - THROAT IRRITATION [None]
  - UPPER RESPIRATORY TRACT CONGESTION [None]
